FAERS Safety Report 9320967 (Version 2)
Quarter: 2013Q2

REPORT INFORMATION
  Report Type: Spontaneous
  Country: US (occurrence: US)
  Receive Date: 20130531
  Receipt Date: 20130624
  Transmission Date: 20140414
  Serious: No
  Sender: FDA-Public Use
  Company Number: US-PFIZER INC-2013165346

PATIENT
  Sex: Female

DRUGS (5)
  1. PRISTIQ [Suspect]
     Indication: DEPRESSION
     Dosage: 50 MG, 1X/DAY
     Route: 048
     Dates: start: 200908
  2. PRISTIQ [Suspect]
     Dosage: 100 MG, 1X/DAY X3 DAYS
     Route: 048
  3. PRISTIQ [Suspect]
     Dosage: 100 MG AND 50 MG, ALTERNATE DAY X 10 DAYS
     Route: 048
  4. PRISTIQ [Suspect]
     Dosage: 50 MG, 1X/DAY X 10 DAYS
     Route: 048
  5. PRISTIQ [Suspect]
     Dosage: 50 MG, ALTERNATE DAY X 10 DAYS
     Route: 048

REACTIONS (2)
  - Pruritus [Recovered/Resolved]
  - Drug ineffective [Unknown]
